FAERS Safety Report 8531601-7 (Version None)
Quarter: 2012Q3

REPORT INFORMATION
  Report Type: 
  Country: None (occurrence: None)
  Receive Date: 20120723
  Receipt Date: 20120704
  Transmission Date: 20120928
  Serious: Yes (Other)
  Sender: FDA-Public Use
  Company Number: DE-ROCHE-1065083

PATIENT
  Age: 36 Year
  Sex: Male

DRUGS (1)
  1. OMALIZUMAB [Suspect]
     Indication: DERMATITIS ATOPIC
     Route: 058
     Dates: start: 20101001, end: 20110101

REACTIONS (3)
  - TONGUE NEOPLASM MALIGNANT STAGE UNSPECIFIED [None]
  - TONGUE DISCOLOURATION [None]
  - LEUKOPLAKIA ORAL [None]
